FAERS Safety Report 24192735 (Version 2)
Quarter: 2024Q4

REPORT INFORMATION
  Report Type: Spontaneous
  Country: US (occurrence: US)
  Receive Date: 20240809
  Receipt Date: 20241010
  Transmission Date: 20250115
  Serious: Yes (Death)
  Sender: MERZ
  Company Number: US-Merz Pharmaceuticals GmbH-2024070000193

PATIENT

DRUGS (26)
  1. XEOMIN [Suspect]
     Active Substance: INCOBOTULINUMTOXINA
     Indication: Torticollis
     Dosage: 285 025
     Route: 030
     Dates: start: 20240515, end: 20240515
  2. XEOMIN [Suspect]
     Active Substance: INCOBOTULINUMTOXINA
     Indication: Torticollis
     Dosage: 400 025
     Route: 030
     Dates: start: 202305, end: 202305
  3. XEOMIN [Suspect]
     Active Substance: INCOBOTULINUMTOXINA
     Indication: Occipital neuralgia
     Dosage: 400 025
     Route: 030
     Dates: start: 20240108, end: 20240108
  4. XEOMIN [Suspect]
     Active Substance: INCOBOTULINUMTOXINA
     Dosage: 300 025
  5. XEOMIN [Suspect]
     Active Substance: INCOBOTULINUMTOXINA
     Dosage: 300 025
  6. XEOMIN [Suspect]
     Active Substance: INCOBOTULINUMTOXINA
     Dosage: 300 025
  7. DYSPORT [BOTULINUM TOXIN TYPE A HAEMAGGLUTININ COMPLEX] [Concomitant]
  8. MYOBLOC [Concomitant]
     Active Substance: RIMABOTULINUMTOXINB
  9. BOTOX [Concomitant]
     Active Substance: ONABOTULINUMTOXINA
     Indication: Dysphagia
     Dates: start: 1997, end: 1997
  10. BOTOX [Concomitant]
     Active Substance: ONABOTULINUMTOXINA
     Indication: Head deformity
  11. PIRTOBRUTINIB [Concomitant]
     Active Substance: PIRTOBRUTINIB
     Indication: Mantle cell lymphoma
     Dosage: 200 003
     Route: 048
     Dates: end: 20240516
  12. PIRTOBRUTINIB [Concomitant]
     Active Substance: PIRTOBRUTINIB
     Dosage: 100 003
     Route: 048
     Dates: start: 20240307, end: 20240521
  13. ULORIC [Concomitant]
     Active Substance: FEBUXOSTAT
     Dosage: 40 003
     Route: 048
     Dates: start: 20240401, end: 20240605
  14. ACYCLOVIR [Concomitant]
     Active Substance: ACYCLOVIR
     Dosage: 400 003
     Route: 048
     Dates: start: 20240322
  15. FEXOFENADINE [Concomitant]
     Active Substance: FEXOFENADINE HYDROCHLORIDE
     Dosage: 60 003
     Route: 048
  16. TAFLUPROST [Concomitant]
     Active Substance: TAFLUPROST
     Dosage: 1 031
     Dates: start: 20231117
  17. CHOLECALCIFEROL [Concomitant]
     Active Substance: CHOLECALCIFEROL
     Dosage: 2000 025
     Route: 048
  18. ALIGN [Concomitant]
     Active Substance: BIFIDOBACTERIUM LONGUM SUBSP. INFANTIS
     Dosage: 1 032
  19. EMLA [Concomitant]
     Active Substance: LIDOCAINE\PRILOCAINE
     Dosage: 30 002
     Route: 003
     Dates: start: 20230720
  20. VENETOCLAX [Concomitant]
     Active Substance: VENETOCLAX
     Indication: Mantle cell lymphoma
     Dates: start: 20240307, end: 20240523
  21. ZANUBRUTINIB [Concomitant]
     Active Substance: ZANUBRUTINIB
     Indication: Mantle cell lymphoma
     Dosage: 80 003
     Route: 048
     Dates: start: 20231129, end: 20240521
  22. LIDOCAINE [Concomitant]
     Active Substance: LIDOCAINE
     Indication: Nerve block
     Dates: start: 20240515, end: 20240515
  23. ALEVE [Concomitant]
     Active Substance: NAPROXEN SODIUM
  24. IBUPROFEN [Concomitant]
     Active Substance: IBUPROFEN
  25. TYLENOL [Concomitant]
     Active Substance: ACETAMINOPHEN
  26. GABAPENTIN [Concomitant]
     Active Substance: GABAPENTIN

REACTIONS (2)
  - Death [Fatal]
  - Overdose [Unknown]

NARRATIVE: CASE EVENT DATE: 20240515
